FAERS Safety Report 6501647-9 (Version None)
Quarter: 2009Q4

REPORT INFORMATION
  Report Type: 
  Country: None (occurrence: None)
  Receive Date: 20091216
  Receipt Date: 20091210
  Transmission Date: 20100525
  Serious: Yes (Hospitalization)
  Sender: FDA-Public Use
  Company Number: US-ROCHE-672562

PATIENT
  Sex: Female

DRUGS (6)
  1. TRASTUZUMAB [Suspect]
     Dosage: DOSE LEVEL: 8 MG/KG. DOSAGE FORM: VIALS.STUDY DRUG ALTERED IN RESPONSE TO EVENT: UNDECIDED.
     Route: 042
     Dates: start: 20091120
  2. BEVACIZUMAB [Suspect]
     Dosage: DOSE LEVEL: 15 MG/KG. FORM VIALS.
     Route: 042
     Dates: start: 20091120
  3. DOCETAXEL [Suspect]
     Dosage: DOSE LEVEL: 75 MG/M2. DOSAGE FORM: VIALS.
     Route: 042
     Dates: start: 20091120
  4. CARBOPLATIN [Suspect]
     Dosage: DOSE LEVEL: 6 AUC, FORM VIALS.
     Route: 042
     Dates: start: 20091120
  5. DIOVAN HCT [Concomitant]
     Dosage: FREQUENCY: DAILY, NAME: DIOVAN HCTZ
  6. METFORMIN HCL [Concomitant]

REACTIONS (1)
  - DEHYDRATION [None]
